FAERS Safety Report 18115731 (Version 2)
Quarter: 2020Q3

REPORT INFORMATION
  Report Type: Spontaneous
  Country: US (occurrence: US)
  Receive Date: 20200805
  Receipt Date: 20200927
  Transmission Date: 20201103
  Serious: Yes (Hospitalization, Other)
  Sender: FDA-Public Use
  Company Number: US-MALLINCKRODT-T202003912

PATIENT
  Sex: Female
  Weight: 83 kg

DRUGS (1)
  1. H.P. ACTHAR [Suspect]
     Active Substance: CORTICOTROPIN
     Indication: RHEUMATOID ARTHRITIS
     Dosage: 1 MILLILITER, TWICE A WEEK (80 UNITS)
     Route: 058
     Dates: start: 202007

REACTIONS (3)
  - Malaise [Unknown]
  - Knee arthroplasty [Unknown]
  - Arthropathy [Unknown]

NARRATIVE: CASE EVENT DATE: 2020
